FAERS Safety Report 17539116 (Version 6)
Quarter: 2021Q2

REPORT INFORMATION
  Report Type: Spontaneous
  Country: US (occurrence: US)
  Receive Date: 20200313
  Receipt Date: 20210610
  Transmission Date: 20210716
  Serious: No
  Sender: FDA-Public Use
  Company Number: US-PFIZER INC-2019285086

PATIENT
  Age: 52 Year
  Sex: Female
  Weight: 104.31 kg

DRUGS (3)
  1. LYRICA [Suspect]
     Active Substance: PREGABALIN
     Indication: NEURALGIA
     Dosage: 50 MG, AS NEEDED (TAKE 1 CAPSULE EVERY 8 HOURS PRN (AS NEEDED)
     Route: 048
  2. LYRICA [Suspect]
     Active Substance: PREGABALIN
     Indication: NEURITIS
     Dosage: 50 MG, 3X/DAY(1 CAPSULE EVERY 8 HOURS; DO NOT TAKE WITH OTHER SEDATIVES, QTY: 90 CAPSULES)
     Route: 048
  3. LYRICA [Suspect]
     Active Substance: PREGABALIN
     Indication: LUMBAR RADICULOPATHY
     Dosage: 100 MG, 3X/DAY (1 CAPSULE BY MOUTH EVERY 8 HOURS)
     Route: 048

REACTIONS (4)
  - Pain [Unknown]
  - Intentional product misuse [Unknown]
  - Expired product administered [Unknown]
  - Bradykinesia [Unknown]
